FAERS Safety Report 17403003 (Version 1)
Quarter: 2020Q1

REPORT INFORMATION
  Report Type: Spontaneous
  Country: US (occurrence: US)
  Receive Date: 20200211
  Receipt Date: 20200211
  Transmission Date: 20200409
  Serious: No
  Sender: FDA-Public Use
  Company Number: US-PERRIGO-19US002364

PATIENT
  Age: 21 Year
  Sex: Female
  Weight: 49.89 kg

DRUGS (2)
  1. TRETINOIN. [Suspect]
     Active Substance: TRETINOIN
     Dosage: SMALL AMOUNT, QD
     Route: 061
     Dates: start: 20190217
  2. TRETINOIN. [Suspect]
     Active Substance: TRETINOIN
     Indication: SKIN HYPERPIGMENTATION
     Dosage: SMALL AMOUNT, TWICE
     Route: 061
     Dates: start: 20190216, end: 20190216

REACTIONS (3)
  - Lip dry [Unknown]
  - Chapped lips [Unknown]
  - Off label use [Unknown]

NARRATIVE: CASE EVENT DATE: 20190216
